FAERS Safety Report 25144943 (Version 1)
Quarter: 2025Q2

REPORT INFORMATION
  Report Type: Spontaneous
  Country: US (occurrence: US)
  Receive Date: 20250401
  Receipt Date: 20250401
  Transmission Date: 20250716
  Serious: Yes (Other)
  Sender: PFIZER
  Company Number: US-PFIZER INC-202500064695

PATIENT
  Age: 27 Year
  Sex: Female

DRUGS (3)
  1. ADCETRIS [Suspect]
     Active Substance: BRENTUXIMAB VEDOTIN
     Indication: Hodgkin^s disease
     Dates: start: 20190510, end: 20200320
  2. NIVOLUMAB [Suspect]
     Active Substance: NIVOLUMAB
     Indication: Hodgkin^s disease
     Dates: start: 20190510, end: 20200320
  3. NIVOLUMAB [Suspect]
     Active Substance: NIVOLUMAB
     Dates: end: 20201116

REACTIONS (16)
  - Headache [Unknown]
  - Vomiting projectile [Unknown]
  - Cough [Recovered/Resolved]
  - Pruritus [Recovered/Resolved]
  - Pyrexia [Unknown]
  - Night sweats [Recovered/Resolved]
  - Weight decreased [Unknown]
  - Haemoptysis [Unknown]
  - Constipation [Unknown]
  - Sensory disturbance [Unknown]
  - Dermatitis acneiform [Unknown]
  - Photopsia [Unknown]
  - Vision blurred [Unknown]
  - Photophobia [Unknown]
  - Arthralgia [Unknown]
  - Nausea [Unknown]

NARRATIVE: CASE EVENT DATE: 20190925
